FAERS Safety Report 12194556 (Version 1)
Quarter: 2016Q1

REPORT INFORMATION
  Report Type: Spontaneous
  Country: US (occurrence: US)
  Receive Date: 20160321
  Receipt Date: 20160321
  Transmission Date: 20160526
  Serious: No
  Sender: FDA-Public Use
  Company Number: US-PFIZER INC-2016153910

PATIENT
  Age: 71 Year
  Sex: Female
  Weight: 91 kg

DRUGS (2)
  1. SYNTHROID [Concomitant]
     Active Substance: LEVOTHYROXINE SODIUM
     Indication: THYROID DISORDER
     Dosage: UNK
  2. SERTRALINE HCL [Suspect]
     Active Substance: SERTRALINE HYDROCHLORIDE
     Indication: DEPRESSION
     Dosage: 100 MG, 1X/DAY (100 MG, CAPSULES, ORALLY, ONCE A DAY)
     Route: 048

REACTIONS (2)
  - Tremor [Unknown]
  - Drug intolerance [Unknown]

NARRATIVE: CASE EVENT DATE: 2013
